FAERS Safety Report 7359807-3 (Version None)
Quarter: 2011Q1

REPORT INFORMATION
  Report Type: 
  Country: None (occurrence: None)
  Receive Date: 20110317
  Receipt Date: 20110311
  Transmission Date: 20110831
  Serious: Yes (Hospitalization)
  Sender: FDA-Public Use
  Company Number: KR-WATSON-2011-03182

PATIENT
  Age: 40 Year
  Sex: Female

DRUGS (3)
  1. MENOTROPINS [Suspect]
     Indication: IN VITRO FERTILISATION
     Dosage: 500 IU DAILY, DURING EACH CYCLE SHE RECEIVED DAILY MENOTROPIN 500 IU ON MENSTRUAL CYCLE DAYS 3-15
     Route: 065
     Dates: start: 20080501, end: 20080501
  2. PROGESTERONE IN OIL INJ [Suspect]
     Indication: IN VITRO FERTILISATION
     Dosage: 50 MG, DAILY
     Route: 065
  3. CHORIONIC GONADOTROPIN [Suspect]
     Indication: IN VITRO FERTILISATION
     Dosage: 5000 IU TOTAL, ADMINISTERED ON DAY 16
     Route: 065
     Dates: start: 20080501, end: 20080501

REACTIONS (2)
  - DISSEMINATED INTRAVASCULAR COAGULATION [None]
  - RENAL FAILURE ACUTE [None]
